FAERS Safety Report 7735009 (Version 4)
Quarter: 2012Q4

REPORT INFORMATION
  Report Type: 
  Country: US (occurrence: US)
  Receive Date: 20101223
  Receipt Date: 20121004
  Transmission Date: 20130627
  Serious: Yes (Other)
  Sender: FDA-Public Use
  Company Number: US-BAYER-201033583NA

PATIENT
  Age: 18 Year
  Sex: Female
  Weight: 83.9 kg

DRUGS (7)
  1. YAZ [Suspect]
     Indication: ACNE
     Dosage: UNK
     Dates: start: 2006, end: 2008
  2. YASMIN [Suspect]
     Indication: ACNE
  3. OCELLA [Suspect]
     Indication: ACNE
  4. TYLENOL [Concomitant]
  5. NEXIUM [Concomitant]
  6. LORTAB [Concomitant]
     Indication: PAIN MANAGEMENT
  7. ACETAMINOPHEN W/CODEINE [Concomitant]

REACTIONS (4)
  - Gallbladder disorder [None]
  - Cholelithiasis [None]
  - Cholecystitis chronic [None]
  - Abdominal pain upper [None]
